FAERS Safety Report 22121665 (Version 1)
Quarter: 2023Q1

REPORT INFORMATION
  Report Type: Spontaneous
  Country: CH (occurrence: CH)
  Receive Date: 20230321
  Receipt Date: 20230321
  Transmission Date: 20230418
  Serious: Yes (Hospitalization, Other)
  Sender: FDA-Public Use
  Company Number: CH-DSJP-DSE-2023-110626

PATIENT
  Age: 80 Year
  Sex: Male

DRUGS (2)
  1. EDOXABAN [Suspect]
     Active Substance: EDOXABAN
     Indication: Product used for unknown indication
     Dosage: UNK
     Route: 065
  2. ELTROMBOPAG [Concomitant]
     Active Substance: ELTROMBOPAG
     Indication: Product used for unknown indication
     Dosage: UNK
     Route: 065

REACTIONS (7)
  - Immune thrombocytopenia [Unknown]
  - Chills [Unknown]
  - Pyrexia [Unknown]
  - Herpes simplex [Unknown]
  - Cheilitis [Recovering/Resolving]
  - Fuchs^ syndrome [Recovering/Resolving]
  - Anaemia [Unknown]
